FAERS Safety Report 8328451-3 (Version None)
Quarter: 2012Q2

REPORT INFORMATION
  Report Type: 
  Country: None (occurrence: None)
  Receive Date: 20120502
  Receipt Date: 20120502
  Transmission Date: 20120825
  Serious: Yes (Other)
  Sender: FDA-Public Use
  Company Number: None

PATIENT
  Age: 47 Year
  Sex: Female
  Weight: 68.946 kg

DRUGS (3)
  1. ZIPRASIDONE HCL [Suspect]
     Indication: BIPOLAR I DISORDER
     Dosage: |DOSAGETEXT: 40 MG||STRENGTH: 40 MG CAPSULE||FREQ: ONCE DAILY Q 5 PM||ROUTE: ORAL|
     Route: 048
     Dates: start: 20120426, end: 20120501
  2. BUPROPION HCL [Concomitant]
     Route: 048
  3. RITALIN [Concomitant]
     Route: 048

REACTIONS (13)
  - OROPHARYNGEAL PAIN [None]
  - HYPERHIDROSIS [None]
  - RHINORRHOEA [None]
  - ENURESIS [None]
  - UPPER-AIRWAY COUGH SYNDROME [None]
  - PYREXIA [None]
  - INSOMNIA [None]
  - DECREASED APPETITE [None]
  - NAUSEA [None]
  - SOMNOLENCE [None]
  - DIARRHOEA [None]
  - FATIGUE [None]
  - QUALITY OF LIFE DECREASED [None]
